FAERS Safety Report 11274572 (Version 2)
Quarter: 2015Q3

REPORT INFORMATION
  Report Type: Spontaneous
  Country: US (occurrence: US)
  Receive Date: 20150715
  Receipt Date: 20150807
  Transmission Date: 20151125
  Serious: Yes (Hospitalization, Other)
  Sender: FDA-Public Use
  Company Number: US-GLAXOSMITHKLINE INC.-US2015GSK101600

PATIENT
  Sex: Female

DRUGS (1)
  1. ADVAIR DISKUS [Suspect]
     Active Substance: FLUTICASONE PROPIONATE\SALMETEROL XINAFOATE
     Indication: PRODUCT USED FOR UNKNOWN INDICATION

REACTIONS (8)
  - Pneumonia [Unknown]
  - Oral candidiasis [Unknown]
  - Drug administration error [Unknown]
  - Hospitalisation [Unknown]
  - Emergency care [Unknown]
  - Device use error [Unknown]
  - Malaise [Unknown]
  - Irregular breathing [Unknown]

NARRATIVE: CASE EVENT DATE: 20121222
